FAERS Safety Report 18009141 (Version 1)
Quarter: 2020Q3

REPORT INFORMATION
  Report Type: Spontaneous
  Country: US (occurrence: US)
  Receive Date: 20200710
  Receipt Date: 20200710
  Transmission Date: 20201103
  Serious: Yes (Hospitalization)
  Sender: FDA-Public Use
  Company Number: US-SAOL THERAPEUTICS-2019SAO00361

PATIENT
  Age: 53 Year
  Sex: Female

DRUGS (6)
  1. BUPIVACAINE. [Suspect]
     Active Substance: BUPIVACAINE
     Dosage: 0.194 MG, \DAY; MINIMUM RATE
     Route: 037
     Dates: start: 20190829
  2. LIORESAL [Suspect]
     Active Substance: BACLOFEN
     Dosage: 22.007 ?G, \DAY
     Route: 037
     Dates: end: 20190829
  3. MORPHINE [Suspect]
     Active Substance: MORPHINE
     Dosage: 2.0007 MG, \DAY
     Route: 037
     Dates: end: 20190829
  4. LIORESAL [Suspect]
     Active Substance: BACLOFEN
     Dosage: 0.356 ?G, \DAY; MINIMUM RATE
     Route: 037
     Dates: start: 20190829
  5. BUPIVACAINE. [Suspect]
     Active Substance: BUPIVACAINE
     Dosage: 12.004 MG, \DAY
     Route: 037
     Dates: start: 20190829
  6. MORPHINE [Suspect]
     Active Substance: MORPHINE
     Dosage: 0.0324 MG, \DAY; MINIMUM RATE
     Route: 037
     Dates: start: 20190829

REACTIONS (4)
  - Muscular weakness [Unknown]
  - Drug ineffective for unapproved indication [Unknown]
  - Nausea [Unknown]
  - Malaise [Unknown]

NARRATIVE: CASE EVENT DATE: 20190829
